FAERS Safety Report 11392032 (Version 1)
Quarter: 2015Q3

REPORT INFORMATION
  Report Type: Spontaneous
  Country: US (occurrence: None)
  Receive Date: 20150817
  Receipt Date: 20150817
  Transmission Date: 20151125
  Serious: Yes (Other)
  Sender: FDA-Public Use
  Company Number: 2014SUP00102

PATIENT
  Age: 58 Year
  Sex: Female
  Weight: 72.6 kg

DRUGS (1)
  1. OXTELLAR XR [Suspect]
     Active Substance: OXCARBAZEPINE
     Indication: EPILEPSY
     Dosage: 600 MG, 2X/DAY, ORAL
     Route: 048
     Dates: start: 2014

REACTIONS (3)
  - Hyponatraemia [None]
  - Stress [None]
  - Non-cardiac chest pain [None]

NARRATIVE: CASE EVENT DATE: 20141019
